FAERS Safety Report 16319466 (Version 1)
Quarter: 2019Q2

REPORT INFORMATION
  Report Type: Spontaneous
  Country: ES (occurrence: ES)
  Receive Date: 20190516
  Receipt Date: 20190516
  Transmission Date: 20190711
  Serious: Yes (Other)
  Sender: FDA-Public Use
  Company Number: ES-BAYER-2019-093342

PATIENT
  Age: 19 Year
  Sex: Female

DRUGS (1)
  1. ACTIRA [Suspect]
     Active Substance: MOXIFLOXACIN HYDROCHLORIDE
     Indication: PERITONSILLAR ABSCESS
     Dosage: UNK
     Dates: start: 201709, end: 2017

REACTIONS (1)
  - Iris hypopigmentation [Recovered/Resolved]

NARRATIVE: CASE EVENT DATE: 201711
